FAERS Safety Report 8818220 (Version 1)
Quarter: 2012Q4

REPORT INFORMATION
  Report Type: 
  Country: IT (occurrence: IT)
  Receive Date: 20121001
  Receipt Date: 20121001
  Transmission Date: 20130627
  Serious: Yes (Other)
  Sender: FDA-Public Use
  Company Number: IT-PFIZER INC-2012238714

PATIENT
  Age: 52 Year
  Sex: Male
  Weight: 68 kg

DRUGS (1)
  1. BENEFIX [Suspect]
     Indication: HAEMOPHILIA B WITH ANTI FACTOR IX
     Dosage: 2720 IU, as needed
     Route: 042
     Dates: start: 20000525, end: 20020926

REACTIONS (1)
  - Drug ineffective [Recovering/Resolving]
